FAERS Safety Report 8805365 (Version 1)
Quarter: 2012Q4

REPORT INFORMATION
  Report Type: 
  Country: US (occurrence: US)
  Receive Date: 20120924
  Receipt Date: 20120924
  Transmission Date: 20130627
  Serious: No
  Sender: FDA-Public Use
  Company Number: US-PFIZER INC-2012231720

PATIENT
  Sex: Female

DRUGS (1)
  1. ZITHROMAX [Suspect]
     Dosage: UNK
     Dates: end: 2012

REACTIONS (3)
  - Hypoaesthesia oral [Unknown]
  - Paraesthesia oral [Unknown]
  - Dysgeusia [Unknown]
